FAERS Safety Report 7594906-2 (Version None)
Quarter: 2011Q3

REPORT INFORMATION
  Report Type: 
  Country: None (occurrence: None)
  Receive Date: 20110707
  Receipt Date: 20110628
  Transmission Date: 20111222
  Serious: Yes (Life-Threatening, Hospitalization)
  Sender: FDA-Public Use
  Company Number: GB-TEVA-288953ISR

PATIENT
  Sex: Female

DRUGS (5)
  1. PROLEUKIN [Suspect]
     Indication: GASTRIC CANCER
     Dosage: 41 MU;
     Route: 042
     Dates: start: 20081125
  2. PROLEUKIN [Suspect]
     Dosage: 7 MU;
     Route: 042
     Dates: start: 20081127
  3. FLUDARABINE PHOSPHATE [Suspect]
     Indication: GASTRIC CANCER
     Dosage: 44 MILLIGRAM;
     Route: 042
     Dates: start: 20081120, end: 20081124
  4. PROLEUKIN [Suspect]
     Dosage: 41 MU;
     Route: 042
     Dates: start: 20081126
  5. MFEZ T CELLS [Suspect]
     Dosage: 1*10^10 CELLS
     Dates: start: 20081125

REACTIONS (9)
  - PULMONARY OEDEMA [None]
  - THROMBOCYTOPENIA [None]
  - PLEURAL EFFUSION [None]
  - OEDEMA [None]
  - PNEUMOTHORAX [None]
  - HYPOTENSION [None]
  - NEUTROPENIC SEPSIS [None]
  - LUNG CONSOLIDATION [None]
  - HAEMORRHAGE INTRACRANIAL [None]
